FAERS Safety Report 10516049 (Version 1)
Quarter: 2014Q4

REPORT INFORMATION
  Report Type: Spontaneous
  Country: US (occurrence: US)
  Receive Date: 20141014
  Receipt Date: 20141014
  Transmission Date: 20150528
  Serious: Yes (Other)
  Sender: FDA-Public Use
  Company Number: PHHY2014US133850

PATIENT
  Age: 35 Year
  Sex: Female

DRUGS (8)
  1. CALCIUM GLUCONATE INJ USP [Suspect]
     Active Substance: CALCIUM GLUCONATE
     Indication: MUSCLE CONTRACTURE
     Dosage: 81 ML (40 ML SLOW INTRAVENOUS PUSH, 41 ML IN INTRAVENOUS DRIP) OVER 12 HOURS
     Route: 042
  2. LASIX [Suspect]
     Active Substance: FUROSEMIDE
     Indication: PRODUCT USED FOR UNKNOWN INDICATION
     Route: 065
  3. MAGNESIUM SULFATE. [Suspect]
     Active Substance: MAGNESIUM SULFATE
     Dosage: 2 TO 3 G/HR, MAINTENANCE
     Route: 065
  4. ANTIBIOTICS [Suspect]
     Active Substance: UNSPECIFIED INGREDIENT
     Indication: PRODUCT USED FOR UNKNOWN INDICATION
     Route: 065
  5. MAGNESIUM SULFATE. [Suspect]
     Active Substance: MAGNESIUM SULFATE
     Indication: TOCOLYSIS
     Dosage: 4 G, LOADING DOSE
     Route: 065
  6. CALCIUM CARBONATE. [Suspect]
     Active Substance: CALCIUM CARBONATE
     Indication: DYSPEPSIA
     Dosage: 5 DF, PER WEEK
     Route: 065
  7. MAGNESIUM SULFATE. [Suspect]
     Active Substance: MAGNESIUM SULFATE
     Dosage: 53 G, TOTAL OVER 20 HOURS
     Route: 065
  8. BETAMETHASONE [Suspect]
     Active Substance: BETAMETHASONE
     Indication: PRODUCT USED FOR UNKNOWN INDICATION
     Route: 065

REACTIONS (10)
  - Muscle contracture [Unknown]
  - Pulmonary oedema [Unknown]
  - Maternal exposure during pregnancy [Unknown]
  - Hypocalcaemia [Recovered/Resolved]
  - Toxicity to various agents [Unknown]
  - Breech presentation [Unknown]
  - Dyspnoea [Unknown]
  - Asthenia [Unknown]
  - Visual impairment [Unknown]
  - Premature labour [Unknown]
